FAERS Safety Report 7089374-3 (Version None)
Quarter: 2010Q4

REPORT INFORMATION
  Report Type: 
  Country: None (occurrence: None)
  Receive Date: 20101108
  Receipt Date: 20101102
  Transmission Date: 20110411
  Serious: Yes (Hospitalization)
  Sender: FDA-Public Use
  Company Number: US-GENZYME-CAMP-1000745

PATIENT
  Sex: Female
  Weight: 209.06 kg

DRUGS (16)
  1. ALEMTUZUMAB [Suspect]
     Indication: MULTIPLE SCLEROSIS
     Dosage: 12 MG, QDX5
     Route: 042
     Dates: start: 20090608, end: 20090612
  2. ALEMTUZUMAB [Suspect]
     Dosage: 12 MG, QDX3
     Dates: start: 20100617, end: 20100619
  3. ASCORBIC ACID [Concomitant]
     Dosage: 500 MG, TID
     Route: 048
     Dates: start: 20080301
  4. VITAMIN A [Concomitant]
     Dosage: 8000 IU, QD
     Route: 048
     Dates: start: 20080301
  5. SELENIUM [Concomitant]
     Indication: ANTIOXIDANT THERAPY
     Dosage: 200 MCG, BID
     Route: 048
     Dates: start: 20080301
  6. VITAMIN D3 [Concomitant]
     Indication: SUPPLEMENTATION THERAPY
     Dosage: 400 IU, QD
     Dates: start: 20080301
  7. VITAMIN E [Concomitant]
     Indication: SUPPLEMENTATION THERAPY
     Dosage: 400 IU, QD
     Route: 048
     Dates: start: 20080301
  8. ECHINACEA [Concomitant]
     Indication: PHYTOTHERAPY
     Dosage: 1 TAB, ONCE
     Route: 048
     Dates: start: 20080301
  9. PROVIGIL [Concomitant]
     Indication: FATIGUE
     Dosage: 200 MG, ONCE
     Route: 048
     Dates: start: 20031126
  10. OXCARBAZEPINE [Concomitant]
     Indication: CONVULSION
     Dosage: 600 MG, BID
     Route: 048
     Dates: start: 20051106
  11. LORA TAB [Concomitant]
     Indication: PAIN
     Dosage: 500 MG, PRN
     Route: 048
     Dates: start: 20080716
  12. AMLODIPINE BESYLATE [Concomitant]
     Indication: HYPERTENSION
     Dosage: 5 MG, QD
     Route: 048
     Dates: start: 20090217
  13. EXCEDRIN (MIGRAINE) [Concomitant]
     Indication: HEADACHE
     Dosage: 500 MG, PRN
     Route: 048
     Dates: start: 20091001
  14. HYDROCHLOROTHIAZIDE [Concomitant]
     Indication: BLOOD PRESSURE
     Dosage: 12.5 MG, QD
     Dates: start: 20090530
  15. METROGEL [Concomitant]
     Indication: ROSACEA
     Dosage: 1 %, QD
     Route: 061
     Dates: start: 20090401
  16. BENTYL [Concomitant]
     Dosage: 160 MG, QW
     Route: 048
     Dates: start: 20100316

REACTIONS (1)
  - ANGIOEDEMA [None]
